FAERS Safety Report 24712977 (Version 1)
Quarter: 2024Q4

REPORT INFORMATION
  Report Type: Spontaneous
  Country: US (occurrence: None)
  Receive Date: 20241208
  Receipt Date: 20241208
  Transmission Date: 20250114
  Serious: No
  Sender: Public
  Company Number: None

PATIENT
  Age: 39 Year
  Sex: Male
  Weight: 76.5 kg

DRUGS (2)
  1. VCF CONTRACEPTIVE [Suspect]
     Active Substance: NONOXYNOL-9
     Indication: Contraception
     Dosage: 10 SUPPO9SITORY(IES  VAGINAL
     Route: 067
     Dates: start: 20241208, end: 20241208
  2. HERBALS\MITRAGYNINE [Concomitant]
     Active Substance: HERBALS\MITRAGYNINE

REACTIONS (3)
  - Penile burning sensation [None]
  - Dysuria [None]
  - Penile pain [None]

NARRATIVE: CASE EVENT DATE: 20241208
